FAERS Safety Report 6428628-8 (Version None)
Quarter: 2009Q4

REPORT INFORMATION
  Report Type: 
  Country: None (occurrence: None)
  Receive Date: 20091105
  Receipt Date: 20091029
  Transmission Date: 20100525
  Serious: Yes (Death, Other)
  Sender: FDA-Public Use
  Company Number: US-PURDUE-USA-2009-0040557

PATIENT
  Age: 30 Year
  Sex: Male
  Weight: 77.098 kg

DRUGS (3)
  1. OXYCODONE HYDROCHLORIDE [Suspect]
     Indication: DRUG ABUSE
  2. MARIJUANA [Suspect]
     Indication: DRUG ABUSE
  3. OXYMORPHONE [Suspect]
     Indication: DRUG ABUSE

REACTIONS (4)
  - INJURY [None]
  - MULTIPLE DRUG OVERDOSE ACCIDENTAL [None]
  - ROAD TRAFFIC ACCIDENT [None]
  - SUBSTANCE ABUSE [None]
